FAERS Safety Report 8436333-1 (Version None)
Quarter: 2012Q2

REPORT INFORMATION
  Report Type: 
  Country: None (occurrence: None)
  Receive Date: 20120614
  Receipt Date: 20120606
  Transmission Date: 20120825
  Serious: Yes (Other)
  Sender: FDA-Public Use
  Company Number: US-ROCHE-701321

PATIENT
  Sex: Male
  Weight: 93.07 kg

DRUGS (7)
  1. ACCUTANE [Suspect]
     Dates: start: 19970822, end: 19980117
  2. ACCUTANE [Suspect]
     Dosage: 80 MG ANG 40 MG ALTERNATE DAYS
     Route: 065
     Dates: start: 19960112, end: 19960223
  3. IBUPROFEN [Concomitant]
     Indication: HEADACHE
  4. ACCUTANE [Suspect]
     Route: 048
     Dates: start: 19951103, end: 19960109
  5. ACCUTANE [Suspect]
     Dates: start: 20010508, end: 20010907
  6. ACCUTANE [Suspect]
     Indication: ACNE
     Route: 065
     Dates: start: 19940107, end: 19940530
  7. ACCUTANE [Suspect]
     Route: 065
     Dates: start: 19960308, end: 19960608

REACTIONS (10)
  - DRY SKIN [None]
  - BLOOD TRIGLYCERIDES INCREASED [None]
  - BLOOD CHOLESTEROL INCREASED [None]
  - ECZEMA ASTEATOTIC [None]
  - DEPRESSION [None]
  - COLITIS ULCERATIVE [None]
  - DERMATITIS [None]
  - INFLAMMATORY BOWEL DISEASE [None]
  - STRESS [None]
  - LIP DRY [None]
